FAERS Safety Report 13044431 (Version 1)
Quarter: 2016Q4

REPORT INFORMATION
  Report Type: Spontaneous
  Country: US (occurrence: US)
  Receive Date: 20161219
  Receipt Date: 20161219
  Transmission Date: 20170207
  Serious: No
  Sender: FDA-Public Use
  Company Number: None

PATIENT
  Age: 57 Year
  Sex: Female

DRUGS (15)
  1. NORCO [Concomitant]
     Active Substance: ACETAMINOPHEN\HYDROCODONE BITARTRATE
  2. FORTEO [Suspect]
     Active Substance: TERIPARATIDE
     Indication: BONE DISORDER
     Route: 058
     Dates: start: 20160616
  3. DEXAMETHASONE. [Concomitant]
     Active Substance: DEXAMETHASONE
  4. MEDROL [Concomitant]
     Active Substance: METHYLPREDNISOLONE
  5. TAXOTERE [Concomitant]
     Active Substance: DOCETAXEL
  6. CYTOXAN [Concomitant]
     Active Substance: CYCLOPHOSPHAMIDE
  7. OMEPRAZOLE. [Concomitant]
     Active Substance: OMEPRAZOLE
  8. CLONAZEPAM. [Concomitant]
     Active Substance: CLONAZEPAM
  9. MORPHINE [Concomitant]
     Active Substance: MORPHINE
  10. VOLTARIN [Concomitant]
  11. HCTZ [Concomitant]
     Active Substance: HYDROCHLOROTHIAZIDE
  12. POTASSIUM [Concomitant]
     Active Substance: POTASSIUM
  13. GABAPENTIN. [Concomitant]
     Active Substance: GABAPENTIN
  14. PROZAC [Concomitant]
     Active Substance: FLUOXETINE HYDROCHLORIDE
  15. TRAZODONE [Concomitant]
     Active Substance: TRAZODONE HYDROCHLORIDE

REACTIONS (3)
  - Breast pain [None]
  - Swelling [None]
  - Urinary tract infection [None]

NARRATIVE: CASE EVENT DATE: 20161215
